FAERS Safety Report 19194439 (Version 1)
Quarter: 2021Q2

REPORT INFORMATION
  Report Type: Spontaneous
  Country: US (occurrence: US)
  Receive Date: 20210429
  Receipt Date: 20210429
  Transmission Date: 20210717
  Serious: Yes (Hospitalization)
  Sender: FDA-Public Use
  Company Number: None

PATIENT
  Age: 53 Year
  Sex: Female

DRUGS (1)
  1. LYNPARZA [Suspect]
     Active Substance: OLAPARIB
     Indication: CERVIX CARCINOMA
     Route: 048

REACTIONS (3)
  - Gait disturbance [None]
  - Lymphoedema [None]
  - Oedema peripheral [None]

NARRATIVE: CASE EVENT DATE: 20210426
